FAERS Safety Report 20768375 (Version 1)
Quarter: 2022Q2

REPORT INFORMATION
  Report Type: Report from Study
  Country: FR (occurrence: FR)
  Receive Date: 20220429
  Receipt Date: 20220429
  Transmission Date: 20220721
  Serious: Yes (Hospitalization, Other)
  Sender: FDA-Public Use
  Company Number: FR-BRISTOL-MYERS SQUIBB COMPANY-BMS-2022-010978

PATIENT
  Age: 46 Year
  Sex: Female
  Weight: 48 kg

DRUGS (3)
  1. NIVOLUMAB [Suspect]
     Active Substance: NIVOLUMAB
     Indication: Metastatic malignant melanoma
     Dosage: 47 MILLIGRAM EVERY 1 CYCLE(S)
     Route: 042
     Dates: start: 20211105, end: 20220124
  2. IPILIMUMAB [Suspect]
     Active Substance: IPILIMUMAB
     Indication: Metastatic malignant melanoma
     Dosage: 141 MILLIGRAM  EVERY 1 CYCLE(S)
     Route: 042
     Dates: start: 20211105, end: 20220124
  3. CERTOLIZUMAB [Suspect]
     Active Substance: CERTOLIZUMAB
     Indication: Metastatic malignant melanoma
     Dosage: 200 MILLIGRAM X 1 / CYCLICAL
     Route: 058
     Dates: start: 20211105, end: 20220124

REACTIONS (2)
  - Hepatic cytolysis [Recovered/Resolved]
  - Meningitis aseptic [Recovered/Resolved]

NARRATIVE: CASE EVENT DATE: 20220109
